FAERS Safety Report 7110127-1 (Version None)
Quarter: 2010Q4

REPORT INFORMATION
  Report Type: 
  Country: None (occurrence: None)
  Receive Date: 20101118
  Receipt Date: 20101105
  Transmission Date: 20110411
  Serious: Yes (Other)
  Sender: FDA-Public Use
  Company Number: US-BAYER-201029655NA

PATIENT
  Age: 20 Year
  Sex: Female
  Weight: 93 kg

DRUGS (2)
  1. YAZ [Suspect]
     Indication: CONTRACEPTION
     Dosage: ADMINISTRATION DATES WERE NOT CLEAR
     Route: 048
     Dates: start: 20060101, end: 20081201
  2. ZOVIA 1/35E-21 [Concomitant]
     Indication: CONTRACEPTION
     Dates: start: 20080401

REACTIONS (8)
  - ABDOMINAL PAIN [None]
  - BILIARY COLIC [None]
  - CHOLECYSTITIS CHRONIC [None]
  - CHOLELITHIASIS [None]
  - MENTAL DISORDER [None]
  - NAUSEA [None]
  - PREGNANCY ON ORAL CONTRACEPTIVE [None]
  - VOMITING [None]
